FAERS Safety Report 4803991-X (Version None)
Quarter: 2005Q3

REPORT INFORMATION
  Report Type: 
  Country: None (occurrence: None)
  Receive Date: 20050920
  Receipt Date: 20050803
  Transmission Date: 20060218
  Serious: No
  Sender: FDA-Public Use
  Company Number: US-YAMANOUCHI-YPA20050379

PATIENT
  Age: 71 Year
  Sex: Female
  Weight: 104.3273 kg

DRUGS (7)
  1. VESICARE [Suspect]
     Indication: HYPERTONIC BLADDER
     Dosage: 5 MG BID PO
     Route: 048
     Dates: start: 20050501, end: 20050701
  2. VESICARE [Suspect]
     Indication: HYPERTONIC BLADDER
     Dosage: 5 MG EODAY PO
     Route: 048
     Dates: start: 20050801
  3. VESICARE [Suspect]
     Indication: HYPERTONIC BLADDER
     Dosage: 10 MG EODAY PO
     Route: 048
     Dates: start: 20050801
  4. SYNTHROID [Concomitant]
  5. VITAMIN B-12 [Concomitant]
  6. VITAMIN E [Concomitant]
  7. ASPIRIN [Concomitant]

REACTIONS (5)
  - BURNING SENSATION [None]
  - DYSSTASIA [None]
  - MUSCLE SPASMS [None]
  - OEDEMA PERIPHERAL [None]
  - WEIGHT INCREASED [None]
